FAERS Safety Report 10777546 (Version 1)
Quarter: 2015Q1

REPORT INFORMATION
  Report Type: Spontaneous
  Country: FR (occurrence: FR)
  Receive Date: 20150209
  Receipt Date: 20150209
  Transmission Date: 20150721
  Serious: Yes (Other)
  Sender: FDA-Public Use
  Company Number: FR-SA-2015SA013946

PATIENT
  Age: 2 Day
  Sex: Female
  Weight: 3.3 kg

DRUGS (1)
  1. STILNOX [Suspect]
     Active Substance: ZOLPIDEM TARTRATE
     Route: 064
     Dates: start: 2014

REACTIONS (5)
  - Hypertonia [Recovered/Resolved]
  - Tremor [Recovered/Resolved]
  - Poor sucking reflex [Unknown]
  - Foetal exposure during pregnancy [Unknown]
  - Hyperreflexia [Unknown]

NARRATIVE: CASE EVENT DATE: 20150109
